FAERS Safety Report 6964128-4 (Version None)
Quarter: 2010Q3

REPORT INFORMATION
  Report Type: 
  Country: None (occurrence: None)
  Receive Date: 20100903
  Receipt Date: 20100715
  Transmission Date: 20110219
  Serious: Yes (Disabling, Other)
  Sender: FDA-Public Use
  Company Number: PHEH2008US08145

PATIENT
  Sex: Female

DRUGS (44)
  1. AREDIA [Suspect]
     Indication: OSTEOPOROSIS
     Dosage: 30 MG, UNK
     Dates: start: 20000608, end: 20030401
  2. AREDIA [Suspect]
     Dosage: 90MG
     Route: 042
  3. ZOMETA [Suspect]
     Dosage: 4 MG, UNK
     Dates: start: 20011005, end: 20060515
  4. ALBUTEROL [Concomitant]
  5. TRAMADOL HCL [Concomitant]
  6. MIRAPEX [Concomitant]
  7. PREDNISONE [Concomitant]
  8. CHLORHEXIDINE GLUCONATE [Concomitant]
  9. AZITHROMYCIN [Concomitant]
  10. ACETAMINOPHEN AND HYDROCODONE BITARTRATE [Concomitant]
  11. LIPITOR [Concomitant]
  12. MOBIC [Concomitant]
  13. NEXIUM [Concomitant]
  14. SYNTHROID [Concomitant]
  15. ZITHROMAX [Concomitant]
  16. ZYRTEC [Concomitant]
  17. VIOXX [Concomitant]
  18. CALCIUM W/VITAMIN D NOS [Concomitant]
  19. ULTRACET [Concomitant]
  20. VICODIN [Concomitant]
  21. BONIVA [Concomitant]
     Dosage: 150 MG, QMO
  22. METRONIDAZOLE [Concomitant]
  23. AMITRIPTYLINE HYDROCHLORIDE [Concomitant]
  24. ZOMIG [Concomitant]
  25. CELEBREX [Concomitant]
  26. SPECTRACEF [Concomitant]
  27. GUAIFENESIN [Concomitant]
  28. HYDROCODONE [Concomitant]
  29. CLOTRIMAZOLE [Concomitant]
  30. METHYLPREDNISOLONE [Concomitant]
  31. CEFADROXIL [Concomitant]
  32. HYDROCHLOROTHIAZIDE [Concomitant]
  33. AMOXICILLIN [Concomitant]
  34. PROAIR HFA [Concomitant]
  35. TAMOXIFEN CITRATE [Concomitant]
  36. INFLUENZA VACCINE [Concomitant]
  37. ESOMEPRAZOLE MAGNESIUM [Concomitant]
  38. DURICEF [Concomitant]
  39. LOTRISONE [Concomitant]
  40. VALTREX [Concomitant]
  41. NEURONTIN [Concomitant]
  42. IBUPROFEN [Concomitant]
  43. COUMADIN [Concomitant]
  44. TAMOXIFEN CITRATE [Concomitant]

REACTIONS (43)
  - ANAEMIA [None]
  - ANXIETY [None]
  - ARTHRALGIA [None]
  - ARTHRITIS [None]
  - AUTONOMIC NERVOUS SYSTEM IMBALANCE [None]
  - BACK PAIN [None]
  - BONE DEBRIDEMENT [None]
  - BONE DISORDER [None]
  - CHRONIC SINUSITIS [None]
  - CONTUSION [None]
  - DECREASED INTEREST [None]
  - DISABILITY [None]
  - DIVERTICULUM [None]
  - DRY EYE [None]
  - DRY MOUTH [None]
  - DYSLIPIDAEMIA [None]
  - EAR PAIN [None]
  - ENDODONTIC PROCEDURE [None]
  - EUSTACHIAN TUBE DYSFUNCTION [None]
  - FALL [None]
  - FIBROMYALGIA [None]
  - GASTROOESOPHAGEAL REFLUX DISEASE [None]
  - GENERAL PHYSICAL HEALTH DETERIORATION [None]
  - HEADACHE [None]
  - HYPERCHOLESTEROLAEMIA [None]
  - HYPERTENSION [None]
  - HYPOTHYROIDISM [None]
  - INJURY [None]
  - INTERVERTEBRAL DISC DEGENERATION [None]
  - LIVER FUNCTION TEST ABNORMAL [None]
  - MUSCLE STRAIN [None]
  - MYALGIA [None]
  - MYOSITIS [None]
  - NODULE [None]
  - OSTEOARTHRITIS [None]
  - OSTEONECROSIS OF JAW [None]
  - PAIN [None]
  - PURULENT DISCHARGE [None]
  - RENAL CYST [None]
  - SCIATICA [None]
  - SICCA SYNDROME [None]
  - TINEA CRURIS [None]
  - TOOTH EXTRACTION [None]
